FAERS Safety Report 15545928 (Version 1)
Quarter: 2018Q4

REPORT INFORMATION
  Report Type: Spontaneous
  Country: SE (occurrence: SE)
  Receive Date: 20181024
  Receipt Date: 20181024
  Transmission Date: 20190205
  Serious: Yes (Hospitalization)
  Sender: FDA-Public Use
  Company Number: SE-NAPPMUNDI-GBR-2018-0060634

PATIENT
  Age: 86 Year
  Sex: Male

DRUGS (3)
  1. OXYNORM [Suspect]
     Active Substance: OXYCODONE HYDROCHLORIDE
     Indication: PAIN
     Dosage: UNK
     Route: 065
     Dates: start: 2018, end: 2018
  2. DOLCONTIN                          /00036302/ [Suspect]
     Active Substance: MORPHINE
     Indication: PAIN
     Route: 065
  3. BRILIQUE [Concomitant]
     Active Substance: TICAGRELOR

REACTIONS (1)
  - Cognitive disorder [Recovered/Resolved]

NARRATIVE: CASE EVENT DATE: 2018
